FAERS Safety Report 5411389-9 (Version None)
Quarter: 2007Q3

REPORT INFORMATION
  Report Type: 
  Country: None (occurrence: None)
  Receive Date: 20070810
  Receipt Date: 20070807
  Transmission Date: 20080115
  Serious: Yes (Other)
  Sender: FDA-Public Use
  Company Number: CA-ASTRAZENECA-2006UW28121

PATIENT
  Age: 65 Year
  Sex: Female
  Weight: 81.8 kg

DRUGS (5)
  1. ZOMIG-ZMT [Suspect]
     Indication: MIGRAINE
     Route: 048
     Dates: start: 20060701, end: 20061101
  2. ESTROGEN [Concomitant]
     Dosage: EVERY 2ND DAY
     Route: 048
  3. ADVIL LIQUI-GELS [Concomitant]
  4. GRAVOL TAB [Concomitant]
  5. FIORINAL [Concomitant]
     Indication: MIGRAINE
     Route: 048

REACTIONS (1)
  - HAEMATOCHEZIA [None]
